FAERS Safety Report 4754622-9 (Version None)
Quarter: 2005Q3

REPORT INFORMATION
  Report Type: 
  Country: None (occurrence: None)
  Receive Date: 20050829
  Receipt Date: 20050722
  Transmission Date: 20060218
  Serious: Yes (Hospitalization)
  Sender: FDA-Public Use
  Company Number: JP-GLAXOSMITHKLINE-B0388780A

PATIENT
  Age: 87 Year
  Sex: Female
  Weight: 42 kg

DRUGS (7)
  1. MODACIN [Suspect]
     Indication: DACRYOCYSTITIS INFECTIVE
     Route: 042
     Dates: start: 20050617, end: 20050621
  2. TARGOCID [Suspect]
     Indication: DACRYOCYSTITIS INFECTIVE
     Dosage: 200MG PER DAY
     Route: 042
     Dates: start: 20050622, end: 20050629
  3. HABEKACIN [Concomitant]
     Indication: DACRYOCYSTITIS INFECTIVE
     Dosage: 100MG PER DAY
     Route: 042
     Dates: start: 20050627, end: 20050627
  4. CRAVIT [Concomitant]
     Indication: DACRYOCYSTITIS INFECTIVE
     Route: 031
     Dates: start: 20050617
  5. SULPELIN [Concomitant]
     Indication: DRUG USE FOR UNKNOWN INDICATION
     Route: 031
     Dates: start: 20050617
  6. SISOMICIN SULFATE [Concomitant]
     Indication: DACRYOCYSTITIS INFECTIVE
     Route: 031
     Dates: start: 20050621
  7. HYPEN [Concomitant]
     Indication: DACRYOCYSTITIS INFECTIVE
     Route: 048
     Dates: start: 20050620

REACTIONS (10)
  - ACNE [None]
  - ACUTE GENERALISED EXANTHEMATOUS PUSTULOSIS [None]
  - DERMATITIS EXFOLIATIVE [None]
  - ERYTHEMA [None]
  - FACE OEDEMA [None]
  - PRURITUS [None]
  - PYREXIA [None]
  - RASH [None]
  - RASH PAPULAR [None]
  - STAPHYLOCOCCAL INFECTION [None]
